FAERS Safety Report 14687998 (Version 1)
Quarter: 2018Q1

REPORT INFORMATION
  Report Type: Spontaneous
  Country: IN (occurrence: IN)
  Receive Date: 20180328
  Receipt Date: 20180328
  Transmission Date: 20180509
  Serious: Yes (Hospitalization, Other)
  Sender: FDA-Public Use
  Company Number: IN-ACCORD-064836

PATIENT
  Age: 17 Year
  Sex: Female

DRUGS (4)
  1. AMITRIPTYLINE [Suspect]
     Active Substance: AMITRIPTYLINE
     Route: 048
  2. FLUPHENAZINE [Suspect]
     Active Substance: FLUPHENAZINE
     Route: 048
  3. PROPRANOLOL [Suspect]
     Active Substance: PROPRANOLOL HYDROCHLORIDE
     Route: 048
  4. GABAPENTIN. [Suspect]
     Active Substance: GABAPENTIN
     Route: 048

REACTIONS (9)
  - Overdose [Unknown]
  - Cardiovascular disorder [Recovering/Resolving]
  - Shock [Unknown]
  - Ischaemic hepatitis [Unknown]
  - Cardiac arrest [Unknown]
  - Ventricular fibrillation [Unknown]
  - Acute kidney injury [Unknown]
  - Multiple organ dysfunction syndrome [Unknown]
  - Supraventricular tachycardia [Unknown]
